FAERS Safety Report 4322731-4 (Version None)
Quarter: 2004Q1

REPORT INFORMATION
  Report Type: 
  Country: None (occurrence: None)
  Receive Date: 20040324
  Receipt Date: 20040322
  Transmission Date: 20041129
  Serious: Yes (Hospitalization)
  Sender: FDA-Public Use
  Company Number: US-GLAXOSMITHKLINE-A0503878A

PATIENT
  Age: 64 Year
  Sex: Male

DRUGS (5)
  1. ADVAIR DISKUS 100/50 [Suspect]
     Dosage: 1PUFF TWICE PER DAY
     Route: 055
  2. SEREVENT [Suspect]
     Dosage: 1PUFF TWICE PER DAY
     Route: 055
  3. PREDNISONE [Concomitant]
  4. ALBUTEROL [Concomitant]
  5. FLOVENT [Concomitant]

REACTIONS (5)
  - DYSPNOEA [None]
  - LACTOSE INTOLERANCE [None]
  - PNEUMONIA [None]
  - PULMONARY FUNCTION TEST DECREASED [None]
  - RESPIRATORY DISORDER [None]
